FAERS Safety Report 24947169 (Version 3)
Quarter: 2025Q1

REPORT INFORMATION
  Report Type: Spontaneous
  Country: US (occurrence: US)
  Receive Date: 20250210
  Receipt Date: 20250301
  Transmission Date: 20250409
  Serious: No
  Sender: SANOFI AVENTIS
  Company Number: US-SA-2025SA039326

PATIENT
  Age: 56 Year
  Sex: Female
  Weight: 81.36 kg

DRUGS (1)
  1. DUPIXENT [Suspect]
     Active Substance: DUPILUMAB
     Indication: Dermatitis atopic
     Dosage: 300 MG, QOW
     Route: 058
     Dates: end: 202412

REACTIONS (7)
  - Abdominal pain upper [Unknown]
  - Faeces discoloured [Unknown]
  - Gait inability [Unknown]
  - Vision blurred [Unknown]
  - Oral herpes [Unknown]
  - Conjunctivitis [Unknown]
  - Therapeutic response unexpected [Unknown]
